FAERS Safety Report 9721608 (Version 1)
Quarter: 2013Q4

REPORT INFORMATION
  Report Type: Spontaneous
  Country: US (occurrence: US)
  Receive Date: 20131201
  Receipt Date: 20131201
  Transmission Date: 20140711
  Serious: No
  Sender: FDA-Public Use
  Company Number: US-ABBVIE-13P-163-1140122-00

PATIENT
  Sex: Male

DRUGS (3)
  1. ANDROGEL [Suspect]
     Indication: BLOOD TESTOSTERONE DECREASED
     Route: 061
     Dates: start: 201307
  2. CELEXA [Concomitant]
     Indication: DEPRESSION
  3. BABY ASPIRIN [Concomitant]
     Indication: PROPHYLAXIS

REACTIONS (1)
  - Fatigue [Not Recovered/Not Resolved]
